FAERS Safety Report 6815516-8 (Version None)
Quarter: 2010Q3

REPORT INFORMATION
  Report Type: 
  Country: None (occurrence: None)
  Receive Date: 20100702
  Receipt Date: 20100630
  Transmission Date: 20110219
  Serious: Yes (Other)
  Sender: FDA-Public Use
  Company Number: CHPA2010US10842

PATIENT
  Age: 68 Year
  Sex: Male
  Weight: 90.703 kg

DRUGS (2)
  1. GAS-X EXTSTR CHEWABLE TABS CHERRY CREME (NCH) [Suspect]
     Indication: FLATULENCE
     Dosage: 250 MG, QD
     Route: 048
     Dates: start: 20100628, end: 20100629
  2. GAS-X EXTSTR CHEWABLE TABS CHERRY CREME (NCH) [Suspect]
     Indication: ABDOMINAL DISTENSION

REACTIONS (2)
  - NEPHROLITHIASIS [None]
  - THERAPEUTIC RESPONSE DECREASED [None]
